FAERS Safety Report 16769803 (Version 1)
Quarter: 2019Q3

REPORT INFORMATION
  Report Type: Spontaneous
  Country: CL (occurrence: CL)
  Receive Date: 20190904
  Receipt Date: 20190904
  Transmission Date: 20191005
  Serious: Yes (Other)
  Sender: FDA-Public Use
  Company Number: CL-EMD SERONO-9113788

PATIENT
  Age: 13 Year
  Sex: Female

DRUGS (5)
  1. SAIZEN [Suspect]
     Active Substance: SOMATROPIN
     Dosage: DOSE DECREASED
     Dates: start: 20190519
  2. EUTHYROX [Concomitant]
     Active Substance: LEVOTHYROXINE SODIUM
     Indication: HYPOTHYROIDISM
     Dosage: MONDAYS TO FRIDAYS 50 MCG AND SATURDAY AND SUNDAY 75MCG
  3. HYDROCORTISONE. [Concomitant]
     Active Substance: HYDROCORTISONE
     Indication: PRODUCT USED FOR UNKNOWN INDICATION
  4. SAIZEN [Suspect]
     Active Substance: SOMATROPIN
     Dosage: DOSE INCREASED
     Dates: start: 20190827
  5. SAIZEN [Suspect]
     Active Substance: SOMATROPIN
     Indication: PRODUCT USED FOR UNKNOWN INDICATION
     Dosage: UNKNOWN DOSE
     Dates: start: 2014

REACTIONS (3)
  - Epiphyses premature fusion [Unknown]
  - Laboratory test abnormal [Unknown]
  - Cortisol decreased [Unknown]

NARRATIVE: CASE EVENT DATE: 2016
